FAERS Safety Report 9551509 (Version 1)
Quarter: 2013Q2

REPORT INFORMATION
  Report Type: Spontaneous
  Country: US (occurrence: None)
  Receive Date: 20130627
  Receipt Date: 20130627
  Transmission Date: 20140414
  Serious: No
  Sender: FDA-Public Use
  Company Number: 1000044191

PATIENT
  Age: 66 Year
  Sex: Female

DRUGS (12)
  1. LINZESS (LINACLOTIDE) (145 MICROGRAM, CAPSULES) [Suspect]
     Indication: CONSTIPATION
     Dosage: 145 MCG, 1 IN 1 D
     Route: 048
     Dates: start: 201303
  2. PROTONIX [Concomitant]
  3. MOTILIUM [Concomitant]
  4. ATENOLOL [Concomitant]
  5. CYCLOBENZAPRINE [Concomitant]
  6. CLARITIN [Concomitant]
  7. TRAMADOL [Concomitant]
  8. FIORECET [Concomitant]
  9. COLACE [Concomitant]
  10. MVI [Concomitant]
  11. VITAMIN B [Concomitant]
  12. FOLIC ACID [Concomitant]

REACTIONS (1)
  - Flatulence [None]
